FAERS Safety Report 21483655 (Version 3)
Quarter: 2022Q4

REPORT INFORMATION
  Report Type: Spontaneous
  Country: US (occurrence: None)
  Receive Date: 20221020
  Receipt Date: 20221214
  Transmission Date: 20230113
  Serious: No
  Sender: FDA-Public Use
  Company Number: 2022A336836

PATIENT
  Age: 57 Year
  Sex: Female
  Weight: 61.2 kg

DRUGS (2)
  1. BYDUREON BCISE [Suspect]
     Active Substance: EXENATIDE
     Indication: Diabetes mellitus
     Route: 058
  2. BYDUREON BCISE [Suspect]
     Active Substance: EXENATIDE
     Indication: Haemoglobin decreased
     Route: 058

REACTIONS (9)
  - Injection site induration [Not Recovered/Not Resolved]
  - Weight decreased [Not Recovered/Not Resolved]
  - Injection site haemorrhage [Unknown]
  - Device leakage [Unknown]
  - Product administration error [Recovered/Resolved]
  - Product dose omission issue [Not Recovered/Not Resolved]
  - Wrong technique in device usage process [Unknown]
  - Device issue [Unknown]
  - Needle issue [Unknown]

NARRATIVE: CASE EVENT DATE: 20220101
